FAERS Safety Report 7790133-4 (Version None)
Quarter: 2011Q3

REPORT INFORMATION
  Report Type: 
  Country: None (occurrence: None)
  Receive Date: 20110930
  Receipt Date: 20101112
  Transmission Date: 20111222
  Serious: No
  Sender: FDA-Public Use
  Company Number: US-ASTRAZENECA-2010SE54141

PATIENT
  Age: 70 Year
  Sex: Female

DRUGS (5)
  1. SPIRONOLONE [Concomitant]
  2. ARIMIDEX [Suspect]
     Route: 048
     Dates: start: 20101001
  3. ARIMIDEX [Suspect]
     Indication: BREAST CANCER
     Route: 048
     Dates: start: 20070101, end: 20101001
  4. NORVASC [Concomitant]
  5. COREG [Concomitant]

REACTIONS (5)
  - JOINT STIFFNESS [None]
  - BLOOD CREATININE DECREASED [None]
  - ARTHRALGIA [None]
  - RENAL FAILURE CHRONIC [None]
  - HYPERCALCAEMIA [None]
